FAERS Safety Report 19558090 (Version 1)
Quarter: 2021Q3

REPORT INFORMATION
  Report Type: Report from Study
  Country: None (occurrence: BR)
  Receive Date: 20210716
  Receipt Date: 20210716
  Transmission Date: 20211014
  Serious: Yes (Death, Disabling, Other)
  Sender: FDA-Public Use
  Company Number: BR-ABBVIE-21K-020-3994083-00

PATIENT
  Sex: Male
  Weight: 70 kg

DRUGS (4)
  1. RINVOQ [Suspect]
     Active Substance: UPADACITINIB
     Route: 048
     Dates: start: 2021
  2. METHOTREXATE. [Concomitant]
     Active Substance: METHOTREXATE
     Indication: RHEUMATOID ARTHRITIS
     Dosage: UNSPECIFIED DOSE
  3. FFOLIC ACID [Concomitant]
     Indication: RHEUMATOID ARTHRITIS
     Dosage: UNSPECIFIED DOSE
  4. RINVOQ [Suspect]
     Active Substance: UPADACITINIB
     Indication: RHEUMATOID ARTHRITIS
     Route: 048

REACTIONS (10)
  - Wrong technique in product usage process [Unknown]
  - Procedural complication [Unknown]
  - Urinary incontinence [Unknown]
  - Asthenia [Unknown]
  - Dysphagia [Unknown]
  - Pulmonary oedema [Unknown]
  - Lung disorder [Fatal]
  - Hypotension [Unknown]
  - Bedridden [Unknown]
  - Rheumatoid arthritis [Fatal]

NARRATIVE: CASE EVENT DATE: 2021
